FAERS Safety Report 7018070-3 (Version None)
Quarter: 2010Q3

REPORT INFORMATION
  Report Type: 
  Country: None (occurrence: None)
  Receive Date: 20100928
  Receipt Date: 20100921
  Transmission Date: 20110219
  Serious: Yes (Disabling, Other)
  Sender: FDA-Public Use
  Company Number: PHHY2010JP44860

PATIENT
  Sex: Male
  Weight: 59 kg

DRUGS (6)
  1. LAMISIL [Suspect]
     Indication: ONYCHOMYCOSIS
     Dosage: 125 MG DAILY
     Route: 048
     Dates: start: 20100223, end: 20100325
  2. PEKIRON [Concomitant]
     Indication: ONYCHOMYCOSIS
     Route: 061
  3. BIOFERMIN [Concomitant]
     Dosage: 3 DF
     Route: 048
  4. UREPEARL [Concomitant]
     Dosage: UNK
     Route: 061
  5. KETOPROFEN [Concomitant]
  6. SHAKUYAKUKANZOUTOU [Concomitant]
     Dosage: 2.5 GRAM
     Route: 048

REACTIONS (13)
  - BLOOD CREATINE PHOSPHOKINASE INCREASED [None]
  - DIZZINESS [None]
  - FATIGUE [None]
  - GENERAL PHYSICAL CONDITION ABNORMAL [None]
  - HEMIPARESIS [None]
  - INSOMNIA [None]
  - MALAISE [None]
  - MOVEMENT DISORDER [None]
  - MUSCULOSKELETAL PAIN [None]
  - MYALGIA [None]
  - NERVE CONDUCTION STUDIES ABNORMAL [None]
  - NEUROPATHY PERIPHERAL [None]
  - RHABDOMYOLYSIS [None]
